FAERS Safety Report 19402882 (Version 1)
Quarter: 2021Q2

REPORT INFORMATION
  Report Type: Spontaneous
  Country: DE (occurrence: DE)
  Receive Date: 20210610
  Receipt Date: 20210610
  Transmission Date: 20210717
  Serious: Yes (Other)
  Sender: FDA-Public Use
  Company Number: DE-AMERICAN REGENT INC-2021001505

PATIENT
  Age: 45 Year
  Sex: Female

DRUGS (2)
  1. FERINJECT [Suspect]
     Active Substance: FERRIC CARBOXYMALTOSE
     Indication: BLOOD IRON DECREASED
     Dosage: 1X1 (1 DOSAGE FORM, 1 IN 1 D)
     Dates: start: 2019
  2. IMBRUVICA [Suspect]
     Active Substance: IBRUTINIB
     Indication: PRODUCT USED FOR UNKNOWN INDICATION
     Dosage: 1X1 (420 MILLIGRAM, 1 IN 1 D)
     Route: 065
     Dates: start: 2016

REACTIONS (4)
  - Hydrocephalus [Unknown]
  - Heavy menstrual bleeding [Unknown]
  - Peripheral swelling [Unknown]
  - Blood pressure increased [Recovered/Resolved]
